FAERS Safety Report 23021289 (Version 1)
Quarter: 2023Q4

REPORT INFORMATION
  Report Type: Spontaneous
  Country: CN (occurrence: CN)
  Receive Date: 20231003
  Receipt Date: 20231003
  Transmission Date: 20240110
  Serious: Yes (Hospitalization, Other)
  Sender: FDA-Public Use
  Company Number: CN-BoehringerIngelheim-2023-BI-264506

PATIENT
  Age: 76 Year
  Sex: Male
  Weight: 70.0 kg

DRUGS (1)
  1. JARDIANCE [Suspect]
     Active Substance: EMPAGLIFLOZIN
     Indication: Diabetes mellitus
     Dosage: 1 DOSAGE FORM
     Route: 048
     Dates: start: 20230210, end: 20230215

REACTIONS (1)
  - Genital tract inflammation [Recovering/Resolving]

NARRATIVE: CASE EVENT DATE: 20230215
